FAERS Safety Report 16417237 (Version 1)
Quarter: 2019Q2

REPORT INFORMATION
  Report Type: Report from Study
  Country: US (occurrence: US)
  Receive Date: 20190611
  Receipt Date: 20190611
  Transmission Date: 20190711
  Serious: Yes (Other)
  Sender: FDA-Public Use
  Company Number: US-ACTELION-A-NJ2019-191463

PATIENT
  Sex: Female

DRUGS (2)
  1. TRAMADOL. [Concomitant]
     Active Substance: TRAMADOL
     Indication: SPINAL FRACTURE
  2. OPSUMIT [Suspect]
     Active Substance: MACITENTAN
     Indication: PULMONARY HYPERTENSION
     Dosage: 10 MG, QD
     Route: 048
     Dates: start: 20190417

REACTIONS (8)
  - Product dose omission [Unknown]
  - Fatigue [Unknown]
  - Spinal fracture [Unknown]
  - Decreased appetite [Unknown]
  - Fracture pain [Unknown]
  - Arthralgia [Unknown]
  - Atrial fibrillation [Unknown]
  - Dyspnoea [Unknown]
